FAERS Safety Report 16044148 (Version 2)
Quarter: 2019Q2

REPORT INFORMATION
  Report Type: Report from Study
  Country: US (occurrence: US)
  Receive Date: 20190306
  Receipt Date: 20190411
  Transmission Date: 20190711
  Serious: Yes (Hospitalization)
  Sender: FDA-Public Use
  Company Number: US-ACTELION-A-NJ2019-184543

PATIENT
  Age: 65 Year
  Sex: Female
  Weight: 61.22 kg

DRUGS (7)
  1. POTASSIUM CHLORIDE. [Concomitant]
     Active Substance: POTASSIUM CHLORIDE
  2. UPTRAVI [Suspect]
     Active Substance: SELEXIPAG
     Indication: PULMONARY ARTERIAL HYPERTENSION
     Dosage: 400 MCG, BID
     Route: 048
     Dates: start: 20181203, end: 201901
  3. UPTRAVI [Suspect]
     Active Substance: SELEXIPAG
     Dosage: 800 MCG, BID
     Route: 048
     Dates: start: 20190107, end: 20190218
  4. REMODULIN [Concomitant]
     Active Substance: TREPROSTINIL
     Indication: PRODUCT USED FOR UNKNOWN INDICATION
     Dosage: UNK
     Dates: start: 20190218
  5. ASPIRIN. [Concomitant]
     Active Substance: ASPIRIN
     Dosage: UNK
     Dates: start: 2014
  6. ADCIRCA [Concomitant]
     Active Substance: TADALAFIL
  7. FUROSEMIDE. [Concomitant]
     Active Substance: FUROSEMIDE

REACTIONS (24)
  - Therapy change [Unknown]
  - Pulmonary hypertension [Recovered/Resolved with Sequelae]
  - Pericardial effusion [Unknown]
  - Tricuspid valve incompetence [Unknown]
  - Dyspnoea [Unknown]
  - Pulmonary arterial pressure increased [Unknown]
  - Dyspnoea exertional [Unknown]
  - Right ventricular failure [Recovered/Resolved with Sequelae]
  - Fatigue [Unknown]
  - Ascites [Unknown]
  - Oedema [Unknown]
  - Palpitations [Unknown]
  - Ventricular internal diameter abnormal [Unknown]
  - Right atrial pressure increased [Unknown]
  - Inferior vena cava dilatation [Unknown]
  - Constipation [Unknown]
  - Right ventricular ejection fraction decreased [Unknown]
  - N-terminal prohormone brain natriuretic peptide increased [Unknown]
  - Right atrial dilatation [Unknown]
  - Atrial septal defect [Unknown]
  - Weight increased [Unknown]
  - Loss of personal independence in daily activities [Unknown]
  - Right ventricular dilatation [Unknown]
  - Right ventricular dysfunction [Unknown]

NARRATIVE: CASE EVENT DATE: 201812
